FAERS Safety Report 6761247-2 (Version None)
Quarter: 2010Q2

REPORT INFORMATION
  Report Type: 
  Country: None (occurrence: None)
  Receive Date: 20100608
  Receipt Date: 20100529
  Transmission Date: 20101027
  Serious: Yes (Other)
  Sender: FDA-Public Use
  Company Number: PHHY2010MX35439

PATIENT
  Sex: Female

DRUGS (1)
  1. DIOVAN HCT [Suspect]
     Indication: HYPERTENSION
     Dosage: TWO TABLETS PER DAY
     Route: 048
     Dates: start: 20010101, end: 20100528

REACTIONS (5)
  - CARDIOMEGALY [None]
  - CARDITIS [None]
  - HEADACHE [None]
  - HYPERTENSION [None]
  - NAUSEA [None]
